FAERS Safety Report 16956049 (Version 1)
Quarter: 2019Q4

REPORT INFORMATION
  Report Type: Spontaneous
  Country: CN (occurrence: CN)
  Receive Date: 20191024
  Receipt Date: 20191024
  Transmission Date: 20200122
  Serious: Yes (Other)
  Sender: FDA-Public Use
  Company Number: CN-BAYER-2019-185791

PATIENT
  Age: 29 Year
  Sex: Female
  Weight: 37 kg

DRUGS (1)
  1. AVELOX [Suspect]
     Active Substance: MOXIFLOXACIN HYDROCHLORIDE
     Indication: ANTI-INFECTIVE THERAPY
     Dosage: 400 MG, QD
     Route: 041
     Dates: start: 20191009, end: 20191010

REACTIONS (7)
  - Dysphoria [Recovering/Resolving]
  - Patient uncooperative [Recovering/Resolving]
  - Fear [Recovering/Resolving]
  - Psychiatric symptom [Recovering/Resolving]
  - Suspiciousness [Recovering/Resolving]
  - Emotional disorder [Recovering/Resolving]
  - Anxiety [Recovering/Resolving]

NARRATIVE: CASE EVENT DATE: 20191009
